FAERS Safety Report 5742286-7 (Version None)
Quarter: 2008Q2

REPORT INFORMATION
  Report Type: 
  Country: None (occurrence: None)
  Receive Date: 20080519
  Receipt Date: 20080509
  Transmission Date: 20081010
  Serious: Yes (Other)
  Sender: FDA-Public Use
  Company Number: PHHY2008BR07889

PATIENT
  Age: 92 Year
  Sex: Female
  Weight: 78 kg

DRUGS (1)
  1. HYDERGINE [Suspect]
     Dosage: 6 MG, QD
     Route: 048
     Dates: start: 20070501, end: 20080429

REACTIONS (3)
  - ABASIA [None]
  - DIZZINESS [None]
  - SYNCOPE [None]
